FAERS Safety Report 20666877 (Version 2)
Quarter: 2022Q2

REPORT INFORMATION
  Report Type: Spontaneous
  Country: JP (occurrence: JP)
  Receive Date: 20220403
  Receipt Date: 20220425
  Transmission Date: 20220721
  Serious: Yes (Other)
  Sender: FDA-Public Use
  Company Number: JP-NOVARTISPH-NVSJ2022JP005037

PATIENT
  Age: 74 Year
  Sex: Male

DRUGS (2)
  1. BEOVU [Suspect]
     Active Substance: BROLUCIZUMAB-DBLL
     Indication: Age-related macular degeneration
     Dosage: 6 MG
     Route: 031
     Dates: start: 20220119, end: 20220119
  2. BEOVU [Suspect]
     Active Substance: BROLUCIZUMAB-DBLL
     Dosage: 6 MG
     Route: 031
     Dates: start: 20220216, end: 20220216

REACTIONS (5)
  - Uveitis [Recovering/Resolving]
  - Keratic precipitates [Recovered/Resolved]
  - Intraocular pressure increased [Recovering/Resolving]
  - Vitreous opacities [Recovering/Resolving]
  - Anterior chamber cell [Unknown]

NARRATIVE: CASE EVENT DATE: 20220316
